FAERS Safety Report 21018828 (Version 2)
Quarter: 2022Q3

REPORT INFORMATION
  Report Type: Spontaneous
  Country: FR (occurrence: FR)
  Receive Date: 20220628
  Receipt Date: 20220822
  Transmission Date: 20221027
  Serious: Yes (Life-Threatening, Other)
  Sender: FDA-Public Use
  Company Number: None

PATIENT
  Age: 51 Year
  Sex: Female

DRUGS (15)
  1. ACETAMINOPHEN\OPIUM [Suspect]
     Active Substance: ACETAMINOPHEN\OPIUM
     Indication: Product used for unknown indication
     Dosage: 500 MG/ 25 MG  X3/J (500 MG/25 MG, DOSE 500MG/ 25 MG INTO 3/J)
     Route: 065
     Dates: end: 20220605
  2. TRAMADOL [Suspect]
     Active Substance: TRAMADOL
     Indication: Product used for unknown indication
     Dosage: 100 UNK, QD
     Route: 065
     Dates: end: 20220605
  3. FENOFIBRATE [Suspect]
     Active Substance: FENOFIBRATE
     Indication: Product used for unknown indication
     Dosage: 160 MILLIGRAM, QD (160 MG/J)  (160 MG, QD)
     Route: 065
     Dates: end: 20220605
  4. DEPAKOTE [Suspect]
     Active Substance: DIVALPROEX SODIUM
     Indication: Fibromyalgia
     Dosage: 1250 MILLIGRAM
     Route: 048
     Dates: end: 20220605
  5. BISOPROLOL FUMARATE\HYDROCHLOROTHIAZIDE [Concomitant]
     Active Substance: BISOPROLOL FUMARATE\HYDROCHLOROTHIAZIDE
     Indication: Product used for unknown indication
     Dosage: UNK 2.5/ 6.25 /J
     Route: 065
     Dates: end: 20220605
  6. OXAZEPAM [Concomitant]
     Active Substance: OXAZEPAM
     Indication: Fibromyalgia
     Dosage: 50 MILLIGRAM, BID (50MG X2)
     Route: 048
     Dates: end: 20220605
  7. STELARA [Concomitant]
     Active Substance: USTEKINUMAB
     Indication: Rheumatic disorder
     Dosage: 1 INJECTION / MONTH
     Route: 065
     Dates: end: 202203
  8. CYMBALTA [Concomitant]
     Active Substance: DULOXETINE HYDROCHLORIDE
     Indication: Fibromyalgia
     Dosage: 60 MILLIGRAM (60MG)
     Route: 048
     Dates: end: 20220605
  9. FUROSEMIDE [Concomitant]
     Active Substance: FUROSEMIDE
     Indication: Product use in unapproved indication
     Dosage: 20 MILLIGRAM (20 MG/J)
     Route: 065
     Dates: end: 20220605
  10. TRIMEPRAZINE [Concomitant]
     Active Substance: TRIMEPRAZINE
     Indication: Depression
     Dosage: XXX DROPS / EVENING
     Route: 065
     Dates: end: 20220605
  11. IMOVANE [Concomitant]
     Active Substance: ZOPICLONE
     Indication: Depression
     Dosage: 7.5 MILLIGRAM (7,5MG)
     Route: 048
     Dates: end: 20220605
  12. PACLITAXEL [Concomitant]
     Active Substance: PACLITAXEL
     Indication: Breast cancer
     Dosage: 80 MILLIGRAM/SQ. METER
     Route: 042
     Dates: start: 202101, end: 20220404
  13. ESOMEPRAZOLE [Concomitant]
     Active Substance: ESOMEPRAZOLE
     Indication: Product used for unknown indication
     Dosage: 40 MILLIGRAM, QD 40 MG/D; CONTINUED CHRONIC TREATMENT
     Route: 065
  14. AMISULPRIDE [Concomitant]
     Active Substance: AMISULPRIDE
     Indication: Fibromyalgia
     Dosage: 100 MILLIGRAM (100MG)
     Route: 048
     Dates: end: 20220605
  15. SPIRONOLACTONE [Concomitant]
     Active Substance: SPIRONOLACTONE
     Indication: Product used for unknown indication
     Dosage: 25 MG/ J
     Route: 065
     Dates: end: 20220605

REACTIONS (1)
  - Pancreatitis acute [Not Recovered/Not Resolved]

NARRATIVE: CASE EVENT DATE: 20220603
